FAERS Safety Report 9777689 (Version 1)
Quarter: 2013Q4

REPORT INFORMATION
  Report Type: Spontaneous
  Country: AT (occurrence: AT)
  Receive Date: 20131223
  Receipt Date: 20131223
  Transmission Date: 20140711
  Serious: Yes (Death, Other)
  Sender: FDA-Public Use
  Company Number: AT-AMGEN-AUTSP2013088774

PATIENT
  Age: 61 Year
  Sex: Male

DRUGS (1)
  1. CINACALCET HCL [Suspect]
     Indication: HYPERPARATHYROIDISM
     Route: 065

REACTIONS (6)
  - Cardiac disorder [Fatal]
  - Calciphylaxis [Unknown]
  - Wound infection [Unknown]
  - Pain [Recovering/Resolving]
  - Vomiting [Unknown]
  - Decreased appetite [Unknown]
